FAERS Safety Report 8964553 (Version 4)
Quarter: 2014Q1

REPORT INFORMATION
  Report Type: Report from Study
  Country: CZ (occurrence: CZ)
  Receive Date: 20121214
  Receipt Date: 20140115
  Transmission Date: 20141002
  Serious: Yes (Death, Hospitalization)
  Sender: FDA-Public Use
  Company Number: CZ-BAYER-2012-130276

PATIENT
  Age: 59 Year
  Sex: Male
  Weight: 87 kg

DRUGS (13)
  1. REGORAFENIB [Suspect]
     Indication: COLORECTAL CANCER
     Dosage: 160 MG, QD
     Route: 048
     Dates: start: 20121108, end: 20121114
  2. REGORAFENIB [Suspect]
     Indication: COLORECTAL CANCER
     Dosage: 160 MG, QD
     Route: 048
     Dates: start: 20121115, end: 20121121
  3. REGORAFENIB [Suspect]
     Indication: COLORECTAL CANCER
     Dosage: 160 MG, QD
     Route: 048
     Dates: start: 20121122, end: 20121127
  4. BETALOC [Concomitant]
     Indication: HYPERTENSION
     Dosage: 200 MG, QD
     Route: 048
     Dates: start: 20121102
  5. ORTANOL [Concomitant]
     Indication: PROPHYLAXIS
     Dosage: UNK
     Dates: start: 20121205
  6. OLTAR [Concomitant]
     Indication: HYPERTENSION
     Dosage: 2 MG, QD
     Route: 048
     Dates: start: 2012
  7. DETRALEX [Concomitant]
     Indication: HAEMORRHOIDS
     Dosage: 1000 MG, TID
     Route: 048
     Dates: start: 201210, end: 20121108
  8. HIPRES [Concomitant]
     Indication: HYPERTENSION
     Dosage: 5 MG, QD
     Route: 048
     Dates: start: 20121113, end: 20121204
  9. GYRABLOCK [Concomitant]
     Indication: ANTIBIOTIC THERAPY
     Dosage: 400 MG, TID
     Route: 048
     Dates: start: 20121114, end: 20121116
  10. TARKA [Concomitant]
     Indication: HYPERTENSION
     Dosage: 2 MG, QD
     Route: 048
     Dates: start: 2012, end: 20121112
  11. TARKA [Concomitant]
     Indication: HYPERTENSION
     Dosage: 4 MG, QD
     Route: 048
     Dates: start: 20121113
  12. IOMERON [Concomitant]
     Dosage: 100 ML, QD
     Route: 042
     Dates: start: 20120927, end: 20120927
  13. IOMERON [Concomitant]
     Dosage: 100 ML, QD
     Route: 042
     Dates: start: 20121211, end: 20121211

REACTIONS (2)
  - General physical health deterioration [Fatal]
  - General physical health deterioration [Recovered/Resolved]
